FAERS Safety Report 13668784 (Version 1)
Quarter: 2017Q2

REPORT INFORMATION
  Report Type: Spontaneous
  Country: US (occurrence: US)
  Receive Date: 20170620
  Receipt Date: 20170620
  Transmission Date: 20170830
  Serious: No
  Sender: FDA-Public Use
  Company Number: None

PATIENT
  Age: 58 Year
  Sex: Female
  Weight: 83.99 kg

DRUGS (6)
  1. VENTOLIM [Concomitant]
  2. BENZONATATE. [Concomitant]
     Active Substance: BENZONATATE
  3. NATEGLINIDE. [Suspect]
     Active Substance: NATEGLINIDE
     Indication: DIABETES MELLITUS
     Route: 048
     Dates: start: 20170523, end: 20170528
  4. SPIRIVA [Concomitant]
     Active Substance: TIOTROPIUM BROMIDE MONOHYDRATE
  5. GLYBURIDE. [Concomitant]
     Active Substance: GLYBURIDE
  6. SYMBICORT [Concomitant]
     Active Substance: BUDESONIDE\FORMOTEROL FUMARATE DIHYDRATE

REACTIONS (3)
  - Oral mucosal blistering [None]
  - Blister [None]
  - Oral mucosal erythema [None]

NARRATIVE: CASE EVENT DATE: 20170530
